FAERS Safety Report 9048982 (Version 1)
Quarter: 2013Q1

REPORT INFORMATION
  Report Type: Spontaneous
  Country: AU (occurrence: None)
  Receive Date: 20130116
  Receipt Date: 20130116
  Transmission Date: 20140127
  Serious: Yes (Hospitalization)
  Sender: FDA-Public Use
  Company Number: VAL_01276_2013

PATIENT
  Age: 59 Year
  Sex: Male
  Weight: 66 kg

DRUGS (9)
  1. METOPROLOL (METOPROLOL-METOPROLOL TARTRATE) [Suspect]
     Indication: MYOCARDIAL ISCHAEMIA
     Dates: end: 20130101
  2. GP2013 [Suspect]
     Dosage: CODE NOT BROKEN, INTRAVENOUS (NOT OTHERWISE SPECIFIED)
     Route: 042
     Dates: start: 20130801
  3. CYCLOPHOSPHAMIDE [Concomitant]
  4. VINCRISTINE [Concomitant]
  5. PREDNISONE [Concomitant]
  6. PLAVIX [Concomitant]
  7. ASPIRIN [Concomitant]
  8. CVP (CODE NOT BROKEN) [Suspect]
  9. MABTHERA [Suspect]

REACTIONS (1)
  - Syncope [None]
